FAERS Safety Report 22181263 (Version 2)
Quarter: 2023Q2

REPORT INFORMATION
  Report Type: Spontaneous
  Country: CN (occurrence: CN)
  Receive Date: 20230406
  Receipt Date: 20230407
  Transmission Date: 20230722
  Serious: Yes (Hospitalization, Disabling, Other)
  Sender: FDA-Public Use
  Company Number: CN-SA-SAC20230404000211

PATIENT
  Age: 58 Year
  Sex: Female
  Weight: 51 kg

DRUGS (3)
  1. ELOXATIN [Suspect]
     Active Substance: OXALIPLATIN
     Indication: Colon cancer
     Dosage: 100 MG, QD
     Route: 013
     Dates: start: 20230227, end: 20230227
  2. ELOXATIN [Suspect]
     Active Substance: OXALIPLATIN
     Dosage: 100 MG, QD
     Route: 041
     Dates: start: 20230228, end: 20230228
  3. GLUCOSE INJECTION MP [Concomitant]
     Indication: Colon cancer
     Dosage: 500 ML
     Route: 041
     Dates: start: 20230228

REACTIONS (16)
  - Ascites [Recovering/Resolving]
  - Abdominal distension [Recovering/Resolving]
  - Hepatomegaly [Recovering/Resolving]
  - Decreased appetite [Recovering/Resolving]
  - Nausea [Recovering/Resolving]
  - Vomiting [Recovering/Resolving]
  - Asthenia [Recovering/Resolving]
  - Myelosuppression [Recovering/Resolving]
  - Platelet count decreased [Recovering/Resolving]
  - Liver injury [Recovering/Resolving]
  - Blood bilirubin increased [Recovering/Resolving]
  - Bilirubin conjugated abnormal [Recovering/Resolving]
  - Alanine aminotransferase increased [Recovering/Resolving]
  - Aspartate aminotransferase increased [Recovering/Resolving]
  - Gamma-glutamyltransferase abnormal [Recovering/Resolving]
  - Blood alkaline phosphatase increased [Recovering/Resolving]

NARRATIVE: CASE EVENT DATE: 20230305
